FAERS Safety Report 6702700-7 (Version None)
Quarter: 2010Q2

REPORT INFORMATION
  Report Type: 
  Country: None (occurrence: None)
  Receive Date: 20100428
  Receipt Date: 20100405
  Transmission Date: 20101027
  Serious: Yes (Hospitalization)
  Sender: FDA-Public Use
  Company Number: 2010040048

PATIENT
  Age: 66 Year
  Sex: Female

DRUGS (2)
  1. SUTRIL (TORASEMIDE) [Suspect]
     Indication: HYPERTENSION
     Dosage: 10 MG (10 MG, 1 IN 1 D), ORAL
     Route: 048
     Dates: start: 20070101
  2. TRILEPTAL [Suspect]
     Indication: EPILEPSY
     Dosage: 150 MG 9150 MG, 1 IN 1 D), ORAL
     Route: 048
     Dates: start: 20070101

REACTIONS (2)
  - HYPOKALAEMIA [None]
  - HYPONATRAEMIA [None]
